FAERS Safety Report 16828955 (Version 2)
Quarter: 2019Q4

REPORT INFORMATION
  Report Type: Spontaneous
  Country: US (occurrence: US)
  Receive Date: 20190919
  Receipt Date: 20191004
  Transmission Date: 20200122
  Serious: No
  Sender: FDA-Public Use
  Company Number: US-B.I. PHARMACEUTICALS,INC./RIDGEFIELD-2019-US-101561

PATIENT
  Sex: Female

DRUGS (1)
  1. JARDIANCE [Suspect]
     Active Substance: EMPAGLIFLOZIN
     Indication: PRODUCT USED FOR UNKNOWN INDICATION
     Route: 065
     Dates: start: 20190827

REACTIONS (7)
  - Blood glucose abnormal [Unknown]
  - Pruritus [Recovered/Resolved]
  - Nerve compression [Recovering/Resolving]
  - Ketoacidosis [Unknown]
  - Headache [Recovered/Resolved]
  - Urinary tract infection [Unknown]
  - Calcinosis [Unknown]

NARRATIVE: CASE EVENT DATE: 2019
